FAERS Safety Report 8948167 (Version 1)
Quarter: 2012Q4

REPORT INFORMATION
  Report Type: Spontaneous
  Country: FR (occurrence: None)
  Receive Date: 20121126
  Receipt Date: 20121126
  Transmission Date: 20130627
  Serious: Yes (Hospitalization)
  Sender: FDA-Public Use
  Company Number: 1495288

PATIENT
  Age: 84 Year
  Sex: Male

DRUGS (3)
  1. PAMIDRONIC ACID [Suspect]
     Indication: HYPERCALCEMIA
     Dosage: 90 mg, 1 in 1, unknown, Intravenous drip
     Route: 041
     Dates: start: 20120405, end: 20120405
  2. MABTHERA [Suspect]
     Indication: DRUG USE FOR UNKNOWN INDICATION
     Route: 041
     Dates: start: 20120213, end: 20120305
  3. SOLIRIS [Suspect]
     Dosage: 620 Mg milligram(s), 1 week, Intravenous drip
     Route: 041
     Dates: start: 20120312, end: 20120327

REACTIONS (5)
  - Respiratory distress [None]
  - Haemolytic uraemic syndrome [None]
  - Anaphylactic shock [None]
  - Bronchiolitis [None]
  - Pneumonitis [None]
